FAERS Safety Report 8922940 (Version 1)
Quarter: 2012Q4

REPORT INFORMATION
  Report Type: 
  Country: US (occurrence: US)
  Receive Date: 20121123
  Receipt Date: 20121123
  Transmission Date: 20130627
  Serious: No
  Sender: FDA-Public Use
  Company Number: US-BAYER-2012-121509

PATIENT
  Sex: Female

DRUGS (2)
  1. ALEVE CAPLET/TABLET,MIDOL EXTENDED RELIEF CAPLET [Suspect]
     Dosage: 660 mg, BID
  2. BAYER GENUINE ASPIRIN ORIGINAL STRENGTH [Suspect]

REACTIONS (4)
  - Gastric disorder [None]
  - Platelet aggregation inhibition [None]
  - Overdose [None]
  - Drug ineffective [None]
